FAERS Safety Report 22080289 (Version 1)
Quarter: 2023Q1

REPORT INFORMATION
  Report Type: Spontaneous
  Country: US (occurrence: US)
  Receive Date: 20230309
  Receipt Date: 20230309
  Transmission Date: 20230418
  Serious: No
  Sender: FDA-Public Use
  Company Number: US-ABBVIE-4333392

PATIENT
  Sex: Female

DRUGS (21)
  1. VENCLEXTA [Suspect]
     Active Substance: VENETOCLAX
     Indication: Hypergammaglobulinaemia
     Route: 048
     Dates: start: 20230124
  2. SYNTHROID [Concomitant]
     Active Substance: LEVOTHYROXINE SODIUM
     Indication: Product used for unknown indication
     Dosage: 50MCG?TAKE 1 TABLET BY ORAL ROUTE EVERY DAY
     Route: 048
     Dates: start: 20200916
  3. ORENCIA [Concomitant]
     Active Substance: ABATACEPT
     Indication: Product used for unknown indication
     Route: 065
     Dates: start: 20200916
  4. VITAMIN C [Concomitant]
     Active Substance: ASCORBIC ACID
     Indication: Product used for unknown indication
     Route: 048
     Dates: start: 20210723
  5. DEXAMETHASONE [Concomitant]
     Active Substance: DEXAMETHASONE
     Indication: Product used for unknown indication
     Dosage: 2 TABLET BY ORAL ROUTE 30-60 MIN
     Route: 048
     Dates: start: 20230120
  6. CALCIUM [Concomitant]
     Active Substance: CALCIUM
     Indication: Product used for unknown indication
     Dosage: TAKE 1 TABLET DAILY
     Route: 048
     Dates: start: 20200916
  7. FIBERCON [Concomitant]
     Active Substance: CALCIUM POLYCARBOPHIL
     Indication: Product used for unknown indication
     Route: 048
     Dates: start: 20230120
  8. protein oral powder [Concomitant]
     Indication: Product used for unknown indication
     Route: 048
     Dates: start: 20230120
  9. Women^s One [Concomitant]
     Indication: Product used for unknown indication
     Dosage: 18MG IRON-400MCG-500MG
     Route: 048
     Dates: start: 20210723
  10. PREDNISONE [Concomitant]
     Active Substance: PREDNISONE
     Indication: Product used for unknown indication
     Dosage: 3 TABLET BY ORAL ROUTE EVERY DAY
     Route: 048
     Dates: start: 20210916
  11. PANTOPRAZOLE [Concomitant]
     Active Substance: PANTOPRAZOLE
     Indication: Product used for unknown indication
     Dosage: TAKE 2 TABLET BY ORAL ROUTE EVERY DAY
     Route: 048
     Dates: start: 20200916
  12. ALLOPURINOL [Concomitant]
     Active Substance: ALLOPURINOL
     Indication: Product used for unknown indication
     Dosage: 1 TABLET BY ORAL ROUTE 2 TIMES EVERY DAY
     Route: 048
     Dates: start: 20230120
  13. TRAMADOL [Concomitant]
     Active Substance: TRAMADOL
     Indication: Product used for unknown indication
     Dosage: : 1 TABLET  EVERY 6 HOURS AS NEEDED
     Route: 048
     Dates: start: 20211201
  14. PRIMIDONE [Concomitant]
     Active Substance: PRIMIDONE
     Indication: Product used for unknown indication
     Route: 048
     Dates: start: 20200916
  15. Papaya enzyme [Concomitant]
     Indication: Product used for unknown indication
     Route: 065
     Dates: start: 20211028
  16. PREMARIN [Concomitant]
     Active Substance: ESTROGENS, CONJUGATED
     Indication: Product used for unknown indication
     Dosage: 0.625MG/GRAM VAGINAL CREAM? INSERT 0.5APPLICATORFUL 3 TIMES PER WEEK
     Route: 067
     Dates: start: 20230118
  17. VITAMIN D3 [Concomitant]
     Active Substance: CHOLECALCIFEROL
     Indication: Product used for unknown indication
     Route: 065
     Dates: start: 20200916
  18. EZETIMIBE [Concomitant]
     Active Substance: EZETIMIBE
     Indication: Product used for unknown indication
     Dosage: 1 TABLET EVERY DAY
     Route: 048
     Dates: start: 20200916
  19. KIRKLAND SIGNATURE ALLERCLEAR [Concomitant]
     Active Substance: LORATADINE
     Indication: Product used for unknown indication
     Dosage: 1 TABLET  EVERY DAY
     Route: 048
     Dates: start: 20200916
  20. PROBIOTICS NOS [Concomitant]
     Active Substance: PROBIOTICS NOS
     Indication: Product used for unknown indication
     Dosage: 1 CAPSULE EVERY MORNING
     Route: 048
     Dates: start: 20200916
  21. GABAPENTIN [Concomitant]
     Active Substance: GABAPENTIN
     Indication: Product used for unknown indication
     Dosage: 2 CAPSULE 3 TIMES EVERY DAY?100 MILLIGRAM
     Route: 048
     Dates: start: 20220817

REACTIONS (1)
  - Off label use [Unknown]
